FAERS Safety Report 5562512-7 (Version None)
Quarter: 2007Q4

REPORT INFORMATION
  Report Type: 
  Country: None (occurrence: None)
  Receive Date: 20071217
  Receipt Date: 20071207
  Transmission Date: 20080405
  Serious: Yes (Hospitalization, Other)
  Sender: FDA-Public Use
  Company Number: US-BAYER-US-2007-042674

PATIENT
  Age: 36 Year
  Sex: Female
  Weight: 71 kg

DRUGS (2)
  1. MIRENA [Suspect]
     Indication: CONTRACEPTION
     Route: 015
     Dates: start: 20070919, end: 20071106
  2. PRENATAL VITAMINS [Concomitant]
     Indication: BREAST FEEDING
     Route: 048

REACTIONS (2)
  - PROCEDURAL PAIN [None]
  - UTERINE PERFORATION [None]
